FAERS Safety Report 15613797 (Version 1)
Quarter: 2018Q4

REPORT INFORMATION
  Report Type: Spontaneous
  Country: US (occurrence: US)
  Receive Date: 20181113
  Receipt Date: 20181113
  Transmission Date: 20190205
  Serious: Yes (Hospitalization, Other)
  Sender: FDA-Public Use
  Company Number: US-UNITED THERAPEUTICS-UNT-2018-018593

PATIENT
  Age: 31 Year
  Sex: Female
  Weight: 74.83 kg

DRUGS (2)
  1. WARFARIN [Concomitant]
     Active Substance: WARFARIN
     Indication: PRODUCT USED FOR UNKNOWN INDICATION
     Route: 065
  2. REMODULIN [Suspect]
     Active Substance: TREPROSTINIL
     Indication: PULMONARY ARTERIAL HYPERTENSION
     Dosage: 0.0555 ?G/KG, CONTINUING
     Route: 058
     Dates: start: 20160108

REACTIONS (2)
  - Loss of consciousness [Unknown]
  - Thyroid hormones increased [Unknown]

NARRATIVE: CASE EVENT DATE: 20181106
